FAERS Safety Report 12788779 (Version 2)
Quarter: 2016Q3

REPORT INFORMATION
  Report Type: Spontaneous
  Country: US (occurrence: US)
  Receive Date: 20160928
  Receipt Date: 20160930
  Transmission Date: 20161109
  Serious: No
  Sender: FDA-Public Use
  Company Number: US-BAYER-2016-186293

PATIENT
  Age: 78 Year
  Sex: Female

DRUGS (1)
  1. MIRALAX [Suspect]
     Active Substance: POLYETHYLENE GLYCOL 3350
     Indication: ULCER HAEMORRHAGE
     Dosage: 1 DF, QD
     Route: 048
     Dates: start: 201609, end: 20160923

REACTIONS (2)
  - Product use issue [Unknown]
  - Off label use [None]

NARRATIVE: CASE EVENT DATE: 201609
